FAERS Safety Report 19811497 (Version 4)
Quarter: 2021Q4

REPORT INFORMATION
  Report Type: Spontaneous
  Country: US (occurrence: US)
  Receive Date: 20210910
  Receipt Date: 20211213
  Transmission Date: 20220303
  Serious: No
  Sender: FDA-Public Use
  Company Number: US-LUPIN PHARMACEUTICALS INC.-2021-16352

PATIENT
  Sex: Male
  Weight: 90.718 kg

DRUGS (1)
  1. TESTOSTERONE [Suspect]
     Active Substance: TESTOSTERONE
     Indication: Androgen deficiency
     Dosage: UNK
     Route: 065
     Dates: start: 2018

REACTIONS (3)
  - Limb discomfort [Unknown]
  - Product physical issue [Unknown]
  - Poor quality product administered [Unknown]
